FAERS Safety Report 20765798 (Version 1)
Quarter: 2022Q2

REPORT INFORMATION
  Report Type: Spontaneous
  Country: DE (occurrence: DE)
  Receive Date: 20220428
  Receipt Date: 20220428
  Transmission Date: 20220721
  Serious: Yes (Other)
  Sender: FDA-Public Use
  Company Number: DE-STADA-245446

PATIENT
  Age: 62 Year
  Sex: Female

DRUGS (2)
  1. OLMESARTAN MEDOXOMIL [Suspect]
     Active Substance: OLMESARTAN MEDOXOMIL
     Indication: Product used for unknown indication
     Dosage: 5 MG, QD (OLMESARTAN MEDOXOMIL CONTAINS EXCIPIENT PEG-400)
     Route: 065
  2. COMIRNATY [Suspect]
     Active Substance: TOZINAMERAN
     Indication: Immunisation
     Dosage: (BOOSTER)
     Route: 065

REACTIONS (2)
  - Type IV hypersensitivity reaction [Unknown]
  - Pain in extremity [Unknown]
